FAERS Safety Report 9837612 (Version 1)
Quarter: 2014Q1

REPORT INFORMATION
  Report Type: Spontaneous
  Country: US (occurrence: US)
  Receive Date: 20140123
  Receipt Date: 20140123
  Transmission Date: 20141002
  Serious: No
  Sender: FDA-Public Use
  Company Number: US-009507513-1401USA004926

PATIENT
  Sex: Female

DRUGS (2)
  1. AFRIN [Suspect]
     Indication: UPPER RESPIRATORY TRACT CONGESTION
     Dosage: UNK, UNKNOWN
     Route: 045
  2. AFRIN [Suspect]
     Indication: NASOPHARYNGITIS

REACTIONS (1)
  - Drug ineffective [Unknown]
